FAERS Safety Report 7641431-6 (Version None)
Quarter: 2011Q3

REPORT INFORMATION
  Report Type: 
  Country: None (occurrence: None)
  Receive Date: 20110728
  Receipt Date: 20110725
  Transmission Date: 20111222
  Serious: Yes (Other)
  Sender: FDA-Public Use
  Company Number: US-PFIZER INC-2011169324

PATIENT
  Sex: Female
  Weight: 59 kg

DRUGS (3)
  1. NIFEDIPINE [Suspect]
     Indication: HYPERTENSION
     Dosage: 30 MG, 1X/DAY
     Route: 048
  2. WARFARIN [Concomitant]
     Indication: ANTICOAGULANT THERAPY
     Dosage: UNK
  3. ATENOLOL [Concomitant]
     Indication: HYPERTENSION
     Dosage: UNK

REACTIONS (4)
  - THERMAL BURN [None]
  - BLOOD PRESSURE INCREASED [None]
  - RECTAL CANCER [None]
  - PRODUCT SOLUBILITY ABNORMAL [None]
